FAERS Safety Report 8985301 (Version 1)
Quarter: 2012Q4

REPORT INFORMATION
  Report Type: Report from Study
  Country: US (occurrence: US)
  Receive Date: 20121226
  Receipt Date: 20121226
  Transmission Date: 20130627
  Serious: Yes (Hospitalization)
  Sender: FDA-Public Use
  Company Number: US-JNJFOC-20121208394

PATIENT
  Sex: Male

DRUGS (19)
  1. ABIRATERONE ACETATE [Suspect]
     Route: 048
  2. ABIRATERONE ACETATE [Suspect]
     Indication: PROSTATE CANCER
     Route: 048
     Dates: start: 20110915
  3. DASATINIB [Suspect]
     Indication: PRODUCT USED FOR UNKNOWN INDICATION
     Dosage: 100/70 mg
     Route: 048
     Dates: start: 20120105
  4. BISOPROLOL [Suspect]
     Indication: PRODUCT USED FOR UNKNOWN INDICATION
     Route: 048
     Dates: start: 20121006
  5. DEGARELIX [Suspect]
     Indication: PRODUCT USED FOR UNKNOWN INDICATION
     Route: 058
  6. MULTIVITAMINS [Suspect]
     Indication: PRODUCT USED FOR UNKNOWN INDICATION
     Route: 048
  7. ZOMETA [Suspect]
     Indication: PRODUCT USED FOR UNKNOWN INDICATION
     Route: 042
  8. ALPRAZOLAM [Suspect]
     Indication: INSOMNIA
     Route: 048
  9. KLOR-CON [Suspect]
     Indication: PRODUCT USED FOR UNKNOWN INDICATION
     Route: 048
  10. TESSALON PERLES [Suspect]
     Indication: PRODUCT USED FOR UNKNOWN INDICATION
     Dosage: 1-2 capsules every 8 hours PRN
     Route: 048
  11. CLARITIN [Suspect]
     Indication: PRODUCT USED FOR UNKNOWN INDICATION
     Route: 048
  12. ASPIRIN [Concomitant]
     Route: 048
  13. CARAFATE SUSPENSION [Concomitant]
     Route: 048
  14. FIRMAGON [Concomitant]
     Route: 058
     Dates: end: 20120920
  15. METOPROLOL TARTRATE [Concomitant]
     Route: 048
  16. OXYCODONE [Concomitant]
     Indication: PAIN
     Dosage: 5-10 mg
     Route: 048
  17. PREDNISONE [Concomitant]
     Route: 048
  18. REGLAN [Concomitant]
     Route: 048
  19. ALL OTHER THERAPEUTIC PRODUCTS [Concomitant]

REACTIONS (2)
  - Pain [Unknown]
  - Renal failure acute [Unknown]
